FAERS Safety Report 16815519 (Version 1)
Quarter: 2019Q4

REPORT INFORMATION
  Report Type: Spontaneous
  Country: US (occurrence: US)
  Receive Date: 20190916
  Receipt Date: 20190916
  Transmission Date: 20200122
  Serious: No
  Sender: FDA-Public Use
  Company Number: None

PATIENT
  Age: 57 Year
  Sex: Female
  Weight: 49.9 kg

DRUGS (1)
  1. RITUXAN [Suspect]
     Active Substance: RITUXIMAB
     Indication: RHEUMATOID ARTHRITIS
     Dosage: ?          OTHER FREQUENCY:EVERY 2 WEEKS 2X/Y;?
     Route: 041
     Dates: start: 20180202

REACTIONS (3)
  - Infusion related reaction [None]
  - Throat irritation [None]
  - Cough [None]

NARRATIVE: CASE EVENT DATE: 20190911
